FAERS Safety Report 9681501 (Version 1)
Quarter: 2013Q4

REPORT INFORMATION
  Report Type: Spontaneous
  Country: US (occurrence: US)
  Receive Date: 20131111
  Receipt Date: 20131111
  Transmission Date: 20140711
  Serious: Yes (Hospitalization, Other)
  Sender: FDA-Public Use
  Company Number: US-PFIZER INC-2013315798

PATIENT
  Age: 55 Year
  Sex: Female
  Weight: 109 kg

DRUGS (7)
  1. CELEBREX [Suspect]
     Indication: OSTEOARTHRITIS
     Dosage: UNK, 2X/DAY
  2. LYRICA [Suspect]
     Indication: FIBROMYALGIA
     Dosage: 50 MG, 2X/DAY
  3. LYRICA [Suspect]
     Indication: DIABETIC NEUROPATHY
  4. CRESTOR [Concomitant]
     Indication: BLOOD CHOLESTEROL INCREASED
     Dosage: 10 MG, 1X/DAY
  5. COREG [Concomitant]
     Indication: HYPERTENSION
     Dosage: 25 MG, 1X/DAY
  6. LEVEMIR [Concomitant]
     Indication: DIABETES MELLITUS
     Dosage: 60 IU, 2X/DAY
  7. NOVOLOG [Concomitant]
     Indication: DIABETES MELLITUS
     Dosage: UNK, 3X/DAY

REACTIONS (2)
  - Uterine cancer [Unknown]
  - Cardiac disorder [Unknown]
